FAERS Safety Report 17718250 (Version 5)
Quarter: 2020Q2

REPORT INFORMATION
  Report Type: Spontaneous
  Country: DE (occurrence: DE)
  Receive Date: 20200428
  Receipt Date: 20200610
  Transmission Date: 20200714
  Serious: Yes (Life-Threatening, Hospitalization, Other)
  Sender: FDA-Public Use
  Company Number: DE-MYLANLABS-2020M1041505

PATIENT
  Age: 68 Year
  Sex: Male
  Weight: 77 kg

DRUGS (15)
  1. TORASEMIDE [Suspect]
     Active Substance: TORSEMIDE
     Indication: RENAL DISORDER
     Dosage: 10 MILLIGRAM, DAILY, 1-0-0
     Route: 065
     Dates: start: 201808
  2. AMLODIPINE [Interacting]
     Active Substance: AMLODIPINE BESYLATE
     Indication: HYPERTENSION
     Dosage: 10 MILLIGRAM, QD(5 MILLIGRAM, BID)1-0-1
     Route: 065
     Dates: start: 201808
  3. MILGAMMA PROTEKT [Interacting]
     Active Substance: BENFOTIAMINE
     Indication: CARDIOVASCULAR DISORDER
     Dosage: 300 MILLIGRAM, DAILY
     Route: 065
     Dates: start: 201808
  4. ALLOPURINOL. [Interacting]
     Active Substance: ALLOPURINOL
     Indication: GOUT
     Dosage: 100 MILLIGRAM, QD
     Route: 065
     Dates: start: 201808
  5. SIMVASTATIN. [Interacting]
     Active Substance: SIMVASTATIN
     Indication: BLOOD CHOLESTEROL
     Dosage: 40 MILLIGRAM, DAILY, 0-0-1
     Route: 065
     Dates: start: 201808
  6. CARVEDILOL. [Interacting]
     Active Substance: CARVEDILOL
     Indication: CARDIAC DISORDER
     Dosage: 50 MILLIGRAM, QD (25 MILLIGRAM, Q12H)
     Route: 065
     Dates: start: 201808
  7. ELIQUIS [Interacting]
     Active Substance: APIXABAN
     Indication: ATRIAL FIBRILLATION
     Dosage: 10 MILLIGRAM, QD(5 MILLIGRAM, BID) 1-0-1
     Route: 065
     Dates: start: 201808
  8. SPIRONOLACTON [Interacting]
     Active Substance: SPIRONOLACTONE
     Indication: CARDIAC DISORDER
     Dosage: 50 MILLIGRAM, DAILY
     Route: 065
     Dates: start: 201808
  9. RAMIPRIL. [Interacting]
     Active Substance: RAMIPRIL
     Indication: HYPERTENSION
     Dosage: 10 MILLIGRAM, QD(5 MILLIGRAM, BID,1-0-1)
     Route: 065
     Dates: start: 201808
  10. PROCORALAN [Interacting]
     Active Substance: IVABRADINE
     Indication: CARDIAC DISORDER
     Dosage: 1-0-0
     Dates: start: 201808
  11. IVABRADINE HYDROCHLORIDE [Interacting]
     Active Substance: IVABRADINE HYDROCHLORIDE
     Indication: CARDIAC DISORDER
     Dosage: 7.5 MILLIGRAM, QD
     Route: 065
     Dates: start: 201808
  12. INSULIN GLARGINE [Interacting]
     Active Substance: INSULIN GLARGINE
     Indication: DIABETES MELLITUS
     Dosage: 15 IE ABENDS
     Route: 065
     Dates: start: 201808
  13. JANUMET [Interacting]
     Active Substance: METFORMIN HYDROCHLORIDE\SITAGLIPTIN PHOSPHATE
     Indication: DIABETES MELLITUS
     Dosage: 1 DOSAGE FORM (50/1000MG), DAILY
     Route: 065
     Dates: start: 201808
  14. AVASTIN [Interacting]
     Active Substance: BEVACIZUMAB
     Indication: DIABETIC RETINAL OEDEMA
     Dosage: INJECT IN THE RIGHT EYE AT 13.30
     Route: 031
     Dates: start: 20200115
  15. ELIQUIS [Interacting]
     Active Substance: APIXABAN
     Indication: CEREBROVASCULAR ACCIDENT PROPHYLAXIS

REACTIONS (6)
  - Movement disorder [Recovered/Resolved]
  - Eye movement disorder [Recovered/Resolved]
  - Drug interaction [Unknown]
  - Off label use [Unknown]
  - Seizure [Recovered/Resolved]
  - Oculogyric crisis [Recovered/Resolved]

NARRATIVE: CASE EVENT DATE: 20200115
